FAERS Safety Report 4284879-2 (Version None)
Quarter: 2004Q1

REPORT INFORMATION
  Report Type: 
  Country: None (occurrence: None)
  Receive Date: 20040204
  Receipt Date: 20030825
  Transmission Date: 20041129
  Serious: Yes (Death)
  Sender: FDA-Public Use
  Company Number: PHBS2003ZA09019

PATIENT
  Age: 12 Year
  Sex: Male
  Weight: 38 kg

DRUGS (5)
  1. RITALIN [Suspect]
     Indication: ATTENTION DEFICIT/HYPERACTIVITY DISORDER
     Dosage: 20 MG/DAY
     Route: 048
     Dates: start: 20030711
  2. BUDESONIDE [Concomitant]
     Dosage: 50 MICROGRAM/D
     Route: 065
     Dates: end: 20030610
  3. FLUTICASONE PROPIONATE [Concomitant]
     Indication: RHINITIS ALLERGIC
     Route: 045
     Dates: end: 20030610
  4. INFLAMMIDE [Concomitant]
     Dosage: 200 UG, BID
     Dates: start: 20030610
  5. VENTOLIN [Concomitant]
     Indication: ASTHMA
     Dosage: ONE OR TWICE EVERY THREE MONTHS
     Route: 065

REACTIONS (6)
  - ARRHYTHMIA [None]
  - BRAIN OEDEMA [None]
  - CIRCULATORY COLLAPSE [None]
  - RHINITIS ALLERGIC [None]
  - SUDDEN DEATH [None]
  - WHEEZING [None]
